FAERS Safety Report 24467724 (Version 1)
Quarter: 2024Q4

REPORT INFORMATION
  Report Type: Report from Study
  Country: US (occurrence: US)
  Receive Date: 20241018
  Receipt Date: 20241018
  Transmission Date: 20250115
  Serious: No
  Sender: ROCHE
  Company Number: US-ROCHE-3577501

PATIENT
  Age: 46 Year

DRUGS (25)
  1. XOLAIR [Suspect]
     Active Substance: OMALIZUMAB
     Indication: Product used for unknown indication
     Route: 065
  2. ZOFRAN [Concomitant]
     Active Substance: ONDANSETRON HYDROCHLORIDE
  3. EMGALITY [Concomitant]
     Active Substance: GALCANEZUMAB-GNLM
  4. HUMIRA [Concomitant]
     Active Substance: ADALIMUMAB
  5. ZEPBOUND [Concomitant]
     Active Substance: TIRZEPATIDE
  6. ADDERALL [Concomitant]
     Active Substance: AMPHETAMINE ASPARTATE\AMPHETAMINE SULFATE\DEXTROAMPHETAMINE SACCHARATE\DEXTROAMPHETAMINE SULFATE
  7. PROZAC [Concomitant]
     Active Substance: FLUOXETINE HYDROCHLORIDE
  8. SEROQUEL [Concomitant]
     Active Substance: QUETIAPINE FUMARATE
  9. BUSPAR [Concomitant]
     Active Substance: BUSPIRONE HYDROCHLORIDE
  10. RESTORIL [Concomitant]
     Active Substance: TEMAZEPAM
  11. TOPAMAX [Concomitant]
     Active Substance: TOPIRAMATE
  12. NEURONTIN [Concomitant]
     Active Substance: GABAPENTIN
  13. SINGULAIR [Concomitant]
     Active Substance: MONTELUKAST SODIUM
  14. CLARITIN [Concomitant]
     Active Substance: LORATADINE
  15. VESICARE [Concomitant]
     Active Substance: SOLIFENACIN SUCCINATE
  16. PREMARIN [Concomitant]
     Active Substance: ESTROGENS, CONJUGATED
  17. GLUCOSAMINE [Concomitant]
     Active Substance: GLUCOSAMINE
  18. VITAMIN A [Concomitant]
     Active Substance: VITAMIN A
  19. VITAMIN D3 [Concomitant]
     Active Substance: CHOLECALCIFEROL
  20. IRON [Concomitant]
     Active Substance: IRON
  21. ATIVAN [Concomitant]
     Active Substance: LORAZEPAM
  22. COMPAZINE [Concomitant]
     Active Substance: PROCHLORPERAZINE MALEATE
  23. AMERGE [Concomitant]
     Active Substance: NARATRIPTAN HYDROCHLORIDE
     Route: 048
  24. UBRELVY [Concomitant]
     Active Substance: UBROGEPANT
  25. MINIPRESS [Concomitant]
     Active Substance: PRAZOSIN HYDROCHLORIDE

REACTIONS (18)
  - Lymphadenopathy [Unknown]
  - Pain [Unknown]
  - Hidradenitis [Unknown]
  - Psoriasis [Unknown]
  - Ehlers-Danlos syndrome [Unknown]
  - Mast cell activation syndrome [Unknown]
  - Migraine [Unknown]
  - Psoriatic arthropathy [Unknown]
  - Fibromyalgia [Unknown]
  - Aphasia [Unknown]
  - Vocal cord dysfunction [Unknown]
  - Post-traumatic stress disorder [Unknown]
  - Anxiety [Unknown]
  - Depression [Unknown]
  - Obsessive-compulsive disorder [Unknown]
  - Eating disorder [Unknown]
  - Dysmorphism [Unknown]
  - Urticaria chronic [Unknown]
